FAERS Safety Report 25310252 (Version 1)
Quarter: 2025Q2

REPORT INFORMATION
  Report Type: Spontaneous
  Country: GB (occurrence: GB)
  Receive Date: 20250514
  Receipt Date: 20250514
  Transmission Date: 20250716
  Serious: Yes (Disabling, Other)
  Sender: NOVO NORDISK
  Company Number: None

PATIENT
  Age: 34 Year
  Sex: Female

DRUGS (1)
  1. OZEMPIC [Suspect]
     Active Substance: SEMAGLUTIDE
     Indication: Weight control
     Dates: start: 20230116, end: 20230901

REACTIONS (5)
  - Alopecia [Unknown]
  - Onychomadesis [Unknown]
  - Psoriasis [Not Recovered/Not Resolved]
  - Cholecystitis [Unknown]
  - Off label use [Unknown]

NARRATIVE: CASE EVENT DATE: 20230601
